FAERS Safety Report 15230939 (Version 1)
Quarter: 2018Q3

REPORT INFORMATION
  Report Type: Report from Study
  Country: JP (occurrence: JP)
  Receive Date: 20180802
  Receipt Date: 20180802
  Transmission Date: 20181010
  Serious: Yes (Hospitalization)
  Sender: FDA-Public Use
  Company Number: JP-ROCHE-2160776

PATIENT

DRUGS (1)
  1. TOCILIZUMAB. [Suspect]
     Active Substance: TOCILIZUMAB
     Indication: RHEUMATOID ARTHRITIS
     Route: 065

REACTIONS (9)
  - Abscess [Unknown]
  - Vomiting [Unknown]
  - Pneumocystis jirovecii pneumonia [Unknown]
  - Pneumonia bacterial [Unknown]
  - Sinusitis bacterial [Unknown]
  - Pneumonia [Unknown]
  - Arthritis bacterial [Unknown]
  - Brain neoplasm [Unknown]
  - Lung neoplasm [Unknown]
